FAERS Safety Report 6763720-X (Version None)
Quarter: 2010Q2

REPORT INFORMATION
  Report Type: 
  Country: None (occurrence: None)
  Receive Date: 20100608
  Receipt Date: 20100525
  Transmission Date: 20101027
  Serious: Yes (Hospitalization)
  Sender: FDA-Public Use
  Company Number: UTC-001117

PATIENT
  Age: 83 Year
  Sex: Male
  Weight: 86.2 kg

DRUGS (20)
  1. TYVASO [Suspect]
     Indication: IDIOPATHIC PULMONARY FIBROSIS
     Dosage: 144 MCG 936 MCG, 4 IN 1 D), INHALATION
     Route: 055
     Dates: start: 20100401
  2. TYVASO [Suspect]
     Indication: PULMONARY ARTERIAL HYPERTENSION
     Dosage: 144 MCG 936 MCG, 4 IN 1 D), INHALATION
     Route: 055
     Dates: start: 20100401
  3. TRACLEER [Concomitant]
  4. TADALAFIL (TADALAFIL) (TABLETS) [Concomitant]
  5. OXYGEN (OXYGEN) [Concomitant]
  6. FORADIL (FORMOTEROL) (AEROSOL FOR INHALATION) [Concomitant]
  7. SULFAMETHOPRIM (BACTRIM (TABLETS) [Concomitant]
  8. POTASSIUM CHLORIDE [Concomitant]
  9. PREDNISONE TAB [Concomitant]
  10. MYCOPHENOLATE (MYCOPHENOLATE MOFETIL) (TABLETS) [Concomitant]
  11. ACETYLCYSTEINE [Concomitant]
  12. COUMADIN (COUMARIN) (TABLETS) [Concomitant]
  13. CO-ENZYME Q10 (UBIDECARENONE) (CAPSULES) [Concomitant]
  14. NEPRO LIQUID (NEPRO) (SOLUTION) [Concomitant]
  15. CENTRUM SILVER (CENTRUM SILVER /01292501/) (TABLETS) [Concomitant]
  16. VITAMIN C (ASCORBIC ACID) (TABLETS) [Concomitant]
  17. AMLODIPINE (AMLODIPINE) (TABLETS) [Concomitant]
  18. LOVASTATIN (LOVASTATIN) (TABLETS) [Concomitant]
  19. COLCHICINE (COLCHICINE) (TABLETS) [Concomitant]
  20. PLAVIX [Concomitant]

REACTIONS (1)
  - HAEMATOMA [None]
